FAERS Safety Report 10131715 (Version 1)
Quarter: 2014Q2

REPORT INFORMATION
  Report Type: Spontaneous
  Country: BR (occurrence: BR)
  Receive Date: 20140428
  Receipt Date: 20140428
  Transmission Date: 20141212
  Serious: Yes (Other)
  Sender: FDA-Public Use
  Company Number: BR-PFIZER INC-2014114677

PATIENT
  Age: 65 Year
  Sex: Male
  Weight: 75 kg

DRUGS (4)
  1. FRONTAL [Suspect]
     Indication: ANXIETY
     Dosage: UNK
  2. FRONTAL [Suspect]
     Indication: RELAXATION THERAPY
  3. PRES PLUS [Concomitant]
     Dosage: UNK
  4. CONCOR [Concomitant]
     Dosage: UNK

REACTIONS (5)
  - Kidney infection [Unknown]
  - Pruritus [Not Recovered/Not Resolved]
  - Erythema [Unknown]
  - Tremor [Unknown]
  - Insomnia [Not Recovered/Not Resolved]
